FAERS Safety Report 19897886 (Version 1)
Quarter: 2021Q3

REPORT INFORMATION
  Report Type: Report from Study
  Country: US (occurrence: US)
  Receive Date: 20210929
  Receipt Date: 20210929
  Transmission Date: 20211014
  Serious: Yes (Hospitalization)
  Sender: FDA-Public Use
  Company Number: US-TAKEDA-2021TUS059644

PATIENT
  Sex: Female

DRUGS (5)
  1. LOPERAMIDE HCL [Concomitant]
     Active Substance: LOPERAMIDE HYDROCHLORIDE
     Dosage: UNK
     Route: 065
  2. ALLOPURINOL. [Concomitant]
     Active Substance: ALLOPURINOL
     Dosage: UNK
     Route: 065
  3. TYLENOL EXTRA STRENGTH [Concomitant]
     Active Substance: ACETAMINOPHEN
     Dosage: UNK
     Route: 065
  4. PONATINIB [Suspect]
     Active Substance: PONATINIB
     Indication: PHILADELPHIA POSITIVE ACUTE LYMPHOCYTIC LEUKAEMIA
     Dosage: 45 MILLIGRAM, QD
     Route: 048
     Dates: start: 202107
  5. ALBUTEROL SULFATE. [Concomitant]
     Active Substance: ALBUTEROL SULFATE
     Dosage: UNK
     Route: 065

REACTIONS (2)
  - White blood cell count increased [Unknown]
  - Drug ineffective [Unknown]
